FAERS Safety Report 21093721 (Version 2)
Quarter: 2023Q1

REPORT INFORMATION
  Report Type: Spontaneous
  Country: FR (occurrence: FR)
  Receive Date: 20220718
  Receipt Date: 20230228
  Transmission Date: 20230418
  Serious: Yes (Hospitalization, Congenital Anomaly, Other)
  Sender: FDA-Public Use
  Company Number: FR-SANOFI-AVENTIS-A02200700374

PATIENT
  Sex: Male
  Weight: 2.6 kg

DRUGS (2)
  1. VALPROIC ACID [Suspect]
     Active Substance: VALPROIC ACID
     Indication: Epilepsy
     Dosage: UNK, QD
     Route: 064
  2. FOLIC ACID [Concomitant]
     Active Substance: FOLIC ACID
     Indication: Product used for unknown indication
     Dosage: UNK
     Route: 064

REACTIONS (39)
  - Craniosynostosis [Recovered/Resolved]
  - Congenital arterial malformation [Recovering/Resolving]
  - Congenital central nervous system anomaly [Unknown]
  - Faecaloma [Unknown]
  - Cardiac aneurysm [Recovering/Resolving]
  - Hypertonia neonatal [Unknown]
  - Exomphalos [Unknown]
  - Fine motor skill dysfunction [Unknown]
  - Visuospatial deficit [Unknown]
  - Scoliosis [Unknown]
  - Musculoskeletal stiffness [Unknown]
  - Atrial septal defect [Not Recovered/Not Resolved]
  - Cryptorchism [Unknown]
  - Motor dysfunction [Unknown]
  - Dysgraphia [Unknown]
  - Dysmorphism [Unknown]
  - Finger deformity [Unknown]
  - Retinal detachment [Unknown]
  - Cognitive disorder [Unknown]
  - Testicular atrophy [Unknown]
  - Coordination abnormal [Unknown]
  - Constipation [Unknown]
  - Foetal exposure during pregnancy [Recovered/Resolved]
  - Fine motor skill dysfunction [Unknown]
  - Encopresis [Unknown]
  - Loss of personal independence in daily activities [Unknown]
  - Dyspraxia [Unknown]
  - Migraine [Unknown]
  - Educational problem [Unknown]
  - Apraxia [Unknown]
  - Astigmatism [Unknown]
  - Social avoidant behaviour [Unknown]
  - Bradyphrenia [Unknown]
  - Hypermetropia [Unknown]
  - Hyperacusis [Unknown]
  - Posture abnormal [Unknown]
  - Refraction disorder [Unknown]
  - Myopia [Unknown]
  - Enuresis [Unknown]

NARRATIVE: CASE EVENT DATE: 20010601
